FAERS Safety Report 10267427 (Version 1)
Quarter: 2014Q2

REPORT INFORMATION
  Report Type: Spontaneous
  Country: US (occurrence: None)
  Receive Date: 20140626
  Receipt Date: 20140626
  Transmission Date: 20141212
  Serious: Yes (Hospitalization)
  Sender: FDA-Public Use
  Company Number: None

PATIENT
  Age: 35 Year
  Sex: Male
  Weight: 139 kg

DRUGS (7)
  1. CLOZAPINE 100 MG TABLETS [Suspect]
     Indication: SCHIZOPHRENIA, PARANOID TYPE
     Dosage: 3 TABS BID ORAL
     Route: 048
  2. ATORVASTATIN [Concomitant]
  3. BENZTROPINE [Concomitant]
  4. NEXIUM [Concomitant]
  5. IBUPROFEN [Concomitant]
  6. LOXAPINE [Concomitant]
  7. MIRALAX [Concomitant]

REACTIONS (6)
  - Fall [None]
  - Toxicity to various agents [None]
  - Tremor [None]
  - Akathisia [None]
  - Speech disorder [None]
  - Weight increased [None]
